FAERS Safety Report 18624746 (Version 1)
Quarter: 2020Q4

REPORT INFORMATION
  Report Type: Report from Study
  Country: JP (occurrence: JP)
  Receive Date: 20201216
  Receipt Date: 20201216
  Transmission Date: 20210114
  Serious: Yes (Death, Other)
  Sender: FDA-Public Use
  Company Number: JP-JNJFOC-A-CH2018-183983

PATIENT
  Age: 2 Year
  Sex: Male
  Weight: 10.6 kg

DRUGS (25)
  1. BERAPROST NA [Concomitant]
     Active Substance: BERAPROST SODIUM
     Indication: PULMONARY ARTERIAL HYPERTENSION
     Dosage: 10 UG, UNK
  2. QVAR [Concomitant]
     Active Substance: BECLOMETHASONE DIPROPIONATE
     Indication: ASTHMA
     Dosage: 3 DF
  3. AMBROXOL [Concomitant]
     Active Substance: AMBROXOL
     Indication: ASTHMA
     Dosage: 9 MG
  4. LOCOID [Concomitant]
     Active Substance: HYDROCORTISONE BUTYRATE
     Dates: start: 20180510
  5. FUROSEMIDE. [Concomitant]
     Active Substance: FUROSEMIDE
     Indication: CARDIAC FAILURE
     Dosage: 18 MG, UNK
  6. ENALAPRIL [Concomitant]
     Active Substance: ENALAPRIL
     Indication: CARDIAC FAILURE
     Dosage: 0.9 MG
  7. DAIPHEN [Concomitant]
     Active Substance: SULFAMETHOXAZOLE\TRIMETHOPRIM
  8. CLOTRIMAZOLE. [Concomitant]
     Active Substance: CLOTRIMAZOLE
     Dates: start: 20180628
  9. REVATIO [Concomitant]
     Active Substance: SILDENAFIL CITRATE
     Indication: PULMONARY ARTERIAL HYPERTENSION
     Dosage: 30 MG, QD
  10. PHENOBAL [Concomitant]
     Active Substance: PHENOBARBITAL
     Dosage: 40 MG,
  11. CARBOCISTEINE [Concomitant]
     Active Substance: CARBOCYSTEINE
     Indication: ASTHMA
     Dosage: 270 MG,
  12. CORTRIL [Concomitant]
     Active Substance: HYDROCORTISONE
     Dosage: 12 MG, UNK
  13. UPTRAVI [Suspect]
     Active Substance: SELEXIPAG
     Indication: PULMONARY ARTERIAL HYPERTENSION
     Dosage: 0.05 MG, BID
     Route: 048
     Dates: start: 20180330
  14. TEARBALANCE [Concomitant]
     Active Substance: HYALURONATE SODIUM
  15. PIPERACILLIN AND TAZOBACTAM [Concomitant]
     Active Substance: PIPERACILLIN SODIUM\TAZOBACTAM SODIUM
     Dates: start: 20180520, end: 20180528
  16. VOLIBRIS [Concomitant]
     Active Substance: AMBRISENTAN
     Indication: PULMONARY ARTERIAL HYPERTENSION
     Dosage: 1 MG
  17. CERCINE [Concomitant]
     Active Substance: DIAZEPAM
     Dosage: 12 MG, UNK
  18. ALDACTONE A [Concomitant]
     Active Substance: SPIRONOLACTONE
     Indication: CARDIAC FAILURE
     Dosage: 18 MG, UNK
  19. ETIZOLAM [Concomitant]
     Active Substance: ETIZOLAM
     Dosage: 2 MG
  20. MEIACT [Concomitant]
     Active Substance: CEFDITOREN PIVOXIL
     Dates: start: 20180529, end: 20180605
  21. MILRILA [Concomitant]
     Active Substance: MILRINONE
     Dates: start: 20180519, end: 20180527
  22. OMEPRAZOLE. [Concomitant]
     Active Substance: OMEPRAZOLE
     Dates: start: 20180519, end: 20180528
  23. DAIKENCHUTO [Concomitant]
     Active Substance: HERBALS
     Dosage: 3 G, UNK
  24. PULSMARIN A [Concomitant]
     Active Substance: AMBROXOL HYDROCHLORIDE
     Dates: start: 20180402
  25. ALPINY [Concomitant]
     Active Substance: ACETAMINOPHEN

REACTIONS (4)
  - Pneumothorax [Recovered/Resolved]
  - Off label use [Unknown]
  - Product use in unapproved indication [Unknown]
  - Death [Fatal]

NARRATIVE: CASE EVENT DATE: 20180519
